FAERS Safety Report 7230779-5 (Version None)
Quarter: 2011Q1

REPORT INFORMATION
  Report Type: 
  Country: None (occurrence: None)
  Receive Date: 20110118
  Receipt Date: 20110113
  Transmission Date: 20110831
  Serious: Yes (Death, Hospitalization, Other)
  Sender: FDA-Public Use
  Company Number: US-ASTRAZENECA-2010SE56963

PATIENT
  Age: 75 Year
  Sex: Female

DRUGS (5)
  1. SEROQUEL XR [Suspect]
     Indication: BIPOLAR I DISORDER
     Route: 048
  2. RISPERDAL [Suspect]
  3. KLONOPIN [Concomitant]
  4. SEROQUEL XR [Suspect]
     Indication: PARANOIA
     Route: 048
  5. PREDNISONE [Concomitant]

REACTIONS (6)
  - CARDIAC DISORDER [None]
  - PULMONARY MASS [None]
  - DEATH [None]
  - BRONCHITIS [None]
  - PNEUMONIA [None]
  - MENTAL DISORDER [None]
